FAERS Safety Report 17212233 (Version 1)
Quarter: 2019Q4

REPORT INFORMATION
  Report Type: Report from Study
  Country: US (occurrence: US)
  Receive Date: 20191230
  Receipt Date: 20191230
  Transmission Date: 20200122
  Serious: No
  Sender: FDA-Public Use
  Company Number: NVSC2019US080971

PATIENT
  Sex: Male

DRUGS (2)
  1. TASIGNA [Suspect]
     Active Substance: NILOTINIB
     Indication: CHRONIC MYELOID LEUKAEMIA
     Dosage: 200 MG, ONCE4SDO
     Route: 048
     Dates: start: 20191105
  2. TASIGNA [Suspect]
     Active Substance: NILOTINIB
     Indication: WHITE BLOOD CELL COUNT INCREASED

REACTIONS (1)
  - Amino acid level increased [Not Recovered/Not Resolved]
